FAERS Safety Report 8318215-9 (Version None)
Quarter: 2012Q2

REPORT INFORMATION
  Report Type: 
  Country: None (occurrence: None)
  Receive Date: 20120427
  Receipt Date: 20120422
  Transmission Date: 20120825
  Serious: Yes (Other)
  Sender: FDA-Public Use
  Company Number: NZ-ROCHE-1061808

PATIENT
  Age: 19 Year
  Sex: Male

DRUGS (1)
  1. ISOTRETINOIN [Suspect]
     Indication: ACNE

REACTIONS (8)
  - ERECTILE DYSFUNCTION [None]
  - FATIGUE [None]
  - PARAESTHESIA [None]
  - DEPRESSION [None]
  - RECTAL HAEMORRHAGE [None]
  - BACK DISORDER [None]
  - ARTHROPATHY [None]
  - CONSTIPATION [None]
